FAERS Safety Report 5294909-7 (Version None)
Quarter: 2007Q2

REPORT INFORMATION
  Report Type: 
  Country: None (occurrence: None)
  Receive Date: 20070411
  Receipt Date: 20070328
  Transmission Date: 20071010
  Serious: Yes (Hospitalization)
  Sender: FDA-Public Use
  Company Number: DL2007120

PATIENT
  Age: 37 Year
  Sex: Female

DRUGS (2)
  1. MIFEPRISTONE TABLETS, 200 MG (DANCO LABS) [Suspect]
     Indication: ABORTION INDUCED
     Dosage: 200 MG, ORAL
     Route: 048
     Dates: start: 20060512
  2. MISOPROSTOL [Suspect]
     Dosage: 800 MCG, BUCCAL
     Route: 002
     Dates: start: 20060513

REACTIONS (2)
  - ABDOMINAL PAIN [None]
  - ECTOPIC PREGNANCY [None]
